FAERS Safety Report 9206085 (Version 1)
Quarter: 2013Q1

REPORT INFORMATION
  Report Type: Spontaneous
  Country: US (occurrence: None)
  Receive Date: 20120731
  Receipt Date: 20120731
  Transmission Date: 20140127
  Serious: Yes (Other)
  Sender: FDA-Public Use
  Company Number: PHEH2012US010883

PATIENT
  Age: 76 Year
  Sex: Female

DRUGS (2)
  1. AREDIA [Suspect]
  2. REVLIMID [Suspect]
     Indication: PLASMA CELL MYELOMA
     Dates: start: 20120103, end: 20120116

REACTIONS (2)
  - Rash generalised [None]
  - Pruritus [None]
